FAERS Safety Report 6295007-6 (Version None)
Quarter: 2009Q3

REPORT INFORMATION
  Report Type: 
  Country: None (occurrence: None)
  Receive Date: 20090730
  Receipt Date: 20090717
  Transmission Date: 20100115
  Serious: Yes (Hospitalization, Other)
  Sender: FDA-Public Use
  Company Number: A-CH2009-24971

PATIENT
  Age: 52 Year
  Sex: Male
  Weight: 76 kg

DRUGS (2)
  1. TRACLEER [Suspect]
     Indication: SKIN ULCER
     Dosage: 62.5 MG, BID, ORAL; 125 MG, BID, ORAL
     Route: 048
     Dates: start: 20090316
  2. TORENTAL (PENTOXIFYLLINE) [Concomitant]
     Dates: start: 20090402, end: 20090411

REACTIONS (7)
  - CONDITION AGGRAVATED [None]
  - CUTANEOUS LUPUS ERYTHEMATOSUS [None]
  - ERYSIPELAS [None]
  - HAEMATOLOGY TEST ABNORMAL [None]
  - LEUKOCYTOCLASTIC VASCULITIS [None]
  - RASH MACULO-PAPULAR [None]
  - THROMBOTIC MICROANGIOPATHY [None]
